FAERS Safety Report 6609071-5 (Version None)
Quarter: 2010Q1

REPORT INFORMATION
  Report Type: 
  Country: None (occurrence: None)
  Receive Date: 20100225
  Receipt Date: 20100225
  Transmission Date: 20100710
  Serious: Yes (Life-Threatening, Other)
  Sender: FDA-Public Use
  Company Number: None

PATIENT
  Age: 45 Year
  Sex: Male
  Weight: 104.3273 kg

DRUGS (1)
  1. CLONAZEPAM [Suspect]
     Indication: TARDIVE DYSKINESIA
     Dosage: 1 NIGHTLY PO
     Route: 048
     Dates: start: 20080715, end: 20100224

REACTIONS (7)
  - DRUG DOSE OMISSION [None]
  - FEAR [None]
  - FEELING ABNORMAL [None]
  - HALLUCINATION [None]
  - RESTLESSNESS [None]
  - TACHYPHRENIA [None]
  - WITHDRAWAL SYNDROME [None]
